FAERS Safety Report 4437266-8 (Version None)
Quarter: 2004Q3

REPORT INFORMATION
  Report Type: 
  Country: None (occurrence: None)
  Receive Date: 20040728
  Receipt Date: 20040420
  Transmission Date: 20050211
  Serious: No
  Sender: FDA-Public Use
  Company Number: WAES 0401USA01992

PATIENT
  Age: 55 Year
  Sex: Female

DRUGS (5)
  1. EMEND [Suspect]
     Indication: CHEMOTHERAPY
     Dosage: 125 MG/1X/PO
     Route: 048
  2. EMEND [Suspect]
     Indication: PROPHYLAXIS
     Dosage: 125 MG/1X/PO
     Route: 048
  3. KYTRIL [Concomitant]
  4. ZOFRAN [Concomitant]
  5. ANTINEOPLASTIC [Concomitant]

REACTIONS (1)
  - OROPHARYNGEAL SWELLING [None]
